FAERS Safety Report 8217601-5 (Version None)
Quarter: 2012Q1

REPORT INFORMATION
  Report Type: 
  Country: None (occurrence: None)
  Receive Date: 20120319
  Receipt Date: 20120319
  Transmission Date: 20120608
  Serious: Yes (Life-Threatening)
  Sender: FDA-Public Use
  Company Number: None

PATIENT
  Age: 38 Year
  Sex: Female
  Weight: 89.811 kg

DRUGS (16)
  1. ZYRTEC [Concomitant]
     Route: 048
  2. MULTI-VITAMIN [Concomitant]
     Route: 048
  3. AMPYRA [Suspect]
     Indication: MULTIPLE SCLEROSIS
     Dosage: 10 MG
     Route: 048
     Dates: start: 20120316, end: 20120316
  4. BETASERON [Concomitant]
     Route: 048
  5. FLEXERIL [Concomitant]
     Route: 048
  6. SINGULAIR [Concomitant]
     Route: 048
  7. ANTIVERT [Concomitant]
     Route: 048
  8. PRILOSEC [Concomitant]
     Route: 048
  9. SKELAXIN [Concomitant]
     Route: 048
  10. VITAMIN B-12 [Concomitant]
     Route: 048
  11. IRON [Concomitant]
     Route: 048
  12. ULTRACET [Concomitant]
  13. MICARDIS [Concomitant]
     Route: 048
  14. NEURONTIN [Concomitant]
     Route: 048
  15. NORTRIPTYLINE HCL [Concomitant]
     Route: 048
  16. PROVIGIL [Concomitant]
     Route: 048

REACTIONS (7)
  - ERYTHEMA [None]
  - PURPURA [None]
  - SWELLING FACE [None]
  - HYPERSENSITIVITY [None]
  - RASH PRURITIC [None]
  - MOVEMENT DISORDER [None]
  - LOCAL SWELLING [None]
